FAERS Safety Report 8835320 (Version 1)
Quarter: 2012Q4

REPORT INFORMATION
  Report Type: Report from Study
  Country: US (occurrence: US)
  Receive Date: 20121011
  Receipt Date: 20121011
  Transmission Date: 20130627
  Serious: Yes (Hospitalization)
  Sender: FDA-Public Use
  Company Number: US-JNJFOC-20121004209

PATIENT
  Sex: Female

DRUGS (6)
  1. SIMPONI [Suspect]
     Indication: RHEUMATOID ARTHRITIS
     Route: 058
     Dates: start: 2011
  2. VICODIN [Concomitant]
  3. WELLBUTRIN [Concomitant]
  4. CELEXA [Concomitant]
  5. LIBRAX [Concomitant]
  6. PREDNISONE [Concomitant]

REACTIONS (4)
  - Cystitis interstitial [Unknown]
  - Rotator cuff syndrome [Recovered/Resolved]
  - Device failure [Unknown]
  - Drug dose omission [Not Recovered/Not Resolved]
